FAERS Safety Report 16124218 (Version 1)
Quarter: 2019Q2

REPORT INFORMATION
  Report Type: Spontaneous
  Country: US (occurrence: US)
  Receive Date: 20190327
  Receipt Date: 20190327
  Transmission Date: 20190711
  Serious: Yes (Other)
  Sender: FDA-Public Use
  Company Number: US-ANIPHARMA-2019-US-000673

PATIENT
  Age: 65 Year
  Sex: Male

DRUGS (10)
  1. LUTISEIUM 177 [Suspect]
     Active Substance: LUTETIUM LU-177
  2. TAXOTERE [Suspect]
     Active Substance: DOCETAXEL
     Dosage: 6 CYCLES X 2
  3. JEVTANA [Suspect]
     Active Substance: CABAZITAXEL
     Dosage: 17 CYCLES
  4. ZYTIGA [Suspect]
     Active Substance: ABIRATERONE ACETATE
  5. PREDNISONE. [Suspect]
     Active Substance: PREDNISONE
  6. CASODEX [Suspect]
     Active Substance: BICALUTAMIDE
     Indication: PROSTATE CANCER
     Route: 048
  7. CARBOPLATIN. [Suspect]
     Active Substance: CARBOPLATIN
     Dosage: 6 CYCLES
  8. ERLEADA [Suspect]
     Active Substance: APALUTAMIDE
  9. LUPRON [Suspect]
     Active Substance: LEUPROLIDE ACETATE
  10. XOFIGO [Suspect]
     Active Substance: RADIUM RA-223 DICHLORIDE

REACTIONS (2)
  - Disease progression [Unknown]
  - Drug ineffective [Unknown]
